FAERS Safety Report 9410138 (Version 2)
Quarter: 2014Q1

REPORT INFORMATION
  Report Type: Spontaneous
  Country: US (occurrence: US)
  Receive Date: 20130719
  Receipt Date: 20140303
  Transmission Date: 20141002
  Serious: Yes (Death, Hospitalization)
  Sender: FDA-Public Use
  Company Number: US-B.I. PHARMACEUTICALS,INC./RIDGEFIELD-2013-BI-20703BP

PATIENT
  Age: 64 Year
  Sex: Female
  Weight: 108.86 kg

DRUGS (14)
  1. PRADAXA [Suspect]
     Indication: ATRIAL FIBRILLATION
     Dosage: 300 MG
     Route: 065
     Dates: start: 20110618, end: 20110713
  2. ASPIRIN [Concomitant]
     Dosage: 162 MG
     Route: 065
  3. TYLENOL [Concomitant]
     Route: 065
  4. PLAVIX [Concomitant]
     Dosage: 75 MG
     Route: 065
  5. METOLAZONE [Concomitant]
     Dosage: 1.0714 MG
     Route: 065
  6. CALCIUM [Concomitant]
     Dosage: 600 MG
     Route: 065
  7. SERTRALINE [Concomitant]
     Dosage: 50 MG
     Route: 065
  8. ISOSORBIDE [Concomitant]
     Dosage: 30 MG
     Route: 065
  9. CRESTOR [Concomitant]
     Dosage: 40 MG
     Route: 065
  10. LISINOPRIL [Concomitant]
     Dosage: 20 MG
     Route: 065
  11. WELCHOL [Concomitant]
     Dosage: 3750 MG
     Route: 065
  12. METOPROLOL [Concomitant]
     Dosage: 50 MG
     Route: 065
  13. FUROSEMIDE [Concomitant]
     Dosage: 120 MG
     Route: 065
  14. MECLIZINE [Concomitant]
     Dosage: 50 MG
     Route: 065

REACTIONS (6)
  - Subarachnoid haemorrhage [Fatal]
  - Mouth haemorrhage [Unknown]
  - Lower gastrointestinal haemorrhage [Unknown]
  - Renal failure acute [Unknown]
  - Coagulopathy [Unknown]
  - Thrombocytopenia [Unknown]
